FAERS Safety Report 19206479 (Version 1)
Quarter: 2021Q2

REPORT INFORMATION
  Report Type: Spontaneous
  Country: US (occurrence: US)
  Receive Date: 20210501
  Receipt Date: 20210501
  Transmission Date: 20210717
  Serious: Yes (Hospitalization)
  Sender: FDA-Public Use
  Company Number: None

PATIENT
  Age: 3 Year
  Sex: Male
  Weight: 12.5 kg

DRUGS (3)
  1. MESNA. [Suspect]
     Active Substance: MESNA
     Dates: end: 20210417
  2. THIOTEPA. [Suspect]
     Active Substance: THIOTEPA
     Dates: end: 20210417
  3. CYCLOPHOSPHAMIDE. [Suspect]
     Active Substance: CYCLOPHOSPHAMIDE
     Dates: end: 20210417

REACTIONS (7)
  - Mucosal inflammation [None]
  - Secretion discharge [None]
  - Oxygen saturation decreased [None]
  - Acute respiratory failure [None]
  - Aspiration [None]
  - Tachypnoea [None]
  - Dyspnoea [None]

NARRATIVE: CASE EVENT DATE: 20210426
